FAERS Safety Report 9828738 (Version 2)
Quarter: 2014Q1

REPORT INFORMATION
  Report Type: Spontaneous
  Country: US (occurrence: US)
  Receive Date: 20140117
  Receipt Date: 20140117
  Transmission Date: 20141002
  Serious: Yes (Hospitalization)
  Sender: FDA-Public Use
  Company Number: US-B.I. PHARMACEUTICALS,INC./RIDGEFIELD-2013-BI-23848BP

PATIENT
  Age: 51 Year
  Sex: Female
  Weight: 142.88 kg

DRUGS (20)
  1. PRADAXA [Suspect]
     Dates: start: 20120124, end: 20130217
  2. ALBUTEROL INHALER [Concomitant]
  3. SOMA [Concomitant]
  4. NAPROXEN [Concomitant]
  5. DOCUSATE [Concomitant]
  6. INSULIN [Concomitant]
  7. ZOFRAN [Concomitant]
  8. DILTIAZEM [Concomitant]
  9. PRILOSEC [Concomitant]
  10. LISINOPRIL [Concomitant]
  11. CLONIDINE [Concomitant]
  12. XANAX [Concomitant]
  13. LORTAB [Concomitant]
  14. COMBIVENT [Concomitant]
  15. POTASSIUM CHLORIDE [Concomitant]
  16. ASPIRIN [Concomitant]
  17. BETAPACE [Concomitant]
  18. METFORMIN [Concomitant]
  19. ZOCOR [Concomitant]
  20. LASIX [Concomitant]

REACTIONS (3)
  - Gastrointestinal haemorrhage [Unknown]
  - Haemorrhagic anaemia [Unknown]
  - Renal failure acute [Unknown]
